FAERS Safety Report 17741496 (Version 1)
Quarter: 2020Q2

REPORT INFORMATION
  Report Type: Spontaneous
  Country: FR (occurrence: FR)
  Receive Date: 20200504
  Receipt Date: 20200504
  Transmission Date: 20200714
  Serious: Yes (Hospitalization)
  Sender: FDA-Public Use
  Company Number: FR-PFIZER INC-2020171166

PATIENT
  Age: 72 Year
  Sex: Male

DRUGS (3)
  1. PARACETAMOL [Concomitant]
     Active Substance: ACETAMINOPHEN
     Dosage: UNK
     Route: 048
  2. TAZOCILLINE [Suspect]
     Active Substance: PIPERACILLIN SODIUM\TAZOBACTAM SODIUM
     Indication: LIVER ABSCESS
     Dosage: UNK
     Route: 042
     Dates: start: 20200213, end: 20200305
  3. FLAGYL [METRONIDAZOLE BENZOATE] [Suspect]
     Active Substance: METRONIDAZOLE BENZOATE
     Indication: LIVER ABSCESS
     Dosage: UNK
     Route: 042
     Dates: start: 20200215, end: 20200305

REACTIONS (2)
  - Rash erythematous [Recovered/Resolved]
  - Haemophagocytic lymphohistiocytosis [Recovered/Resolved]

NARRATIVE: CASE EVENT DATE: 20200305
